FAERS Safety Report 24601740 (Version 1)
Quarter: 2024Q4

REPORT INFORMATION
  Report Type: Report from Study
  Country: CA (occurrence: CA)
  Receive Date: 20241111
  Receipt Date: 20241111
  Transmission Date: 20250114
  Serious: Yes (Hospitalization, Other)
  Sender: EMD SERONO INC
  Company Number: CA-Merck Healthcare KGaA-2024058464

PATIENT
  Sex: Female

DRUGS (1)
  1. MAVENCLAD [Suspect]
     Active Substance: CLADRIBINE
     Indication: Multiple sclerosis
     Dosage: YEAR ONE THERAPY
     Route: 048
     Dates: start: 20230501

REACTIONS (4)
  - Wound [Unknown]
  - Postoperative wound complication [Unknown]
  - Abdominal operation [Unknown]
  - Hospitalisation [Unknown]
